FAERS Safety Report 12827842 (Version 4)
Quarter: 2016Q4

REPORT INFORMATION
  Report Type: Report from Study
  Country: None (occurrence: AU)
  Receive Date: 20161007
  Receipt Date: 20161110
  Transmission Date: 20170207
  Serious: Yes (Hospitalization)
  Sender: FDA-Public Use
  Company Number: AU-ABBVIE-16P-008-1743869-00

PATIENT
  Age: 63 Year
  Sex: Female
  Weight: 55 kg

DRUGS (46)
  1. THYROXINE SODIUM [Concomitant]
     Active Substance: LEVOTHYROXINE SODIUM
     Indication: HYPOTHYROIDISM
     Dates: start: 2014
  2. PREGABALIN. [Concomitant]
     Active Substance: PREGABALIN
     Indication: PAIN
     Dates: start: 2015
  3. LORATADINE. [Concomitant]
     Active Substance: LORATADINE
     Dates: start: 20160831, end: 20160831
  4. ALLOPURINOL. [Concomitant]
     Active Substance: ALLOPURINOL
     Indication: PROPHYLAXIS
     Dates: start: 20160715
  5. VALACICLOVIR [Concomitant]
     Active Substance: VALACYCLOVIR HYDROCHLORIDE
     Indication: PROPHYLAXIS
     Dates: start: 20160718
  6. TEMAZEPAM. [Concomitant]
     Active Substance: TEMAZEPAM
     Indication: PRODUCT USED FOR UNKNOWN INDICATION
     Dosage: AT NIGHT
     Dates: start: 20160725
  7. LORATADINE. [Concomitant]
     Active Substance: LORATADINE
     Indication: PRODUCT USED FOR UNKNOWN INDICATION
     Dates: start: 20160810, end: 20160810
  8. PARACETAMOL [Concomitant]
     Active Substance: ACETAMINOPHEN
     Indication: HEADACHE
     Dates: start: 20160921, end: 20160921
  9. PARACETAMOL [Concomitant]
     Active Substance: ACETAMINOPHEN
     Dates: start: 20160810, end: 20160810
  10. COLOXYL WITH SENNA [Concomitant]
     Active Substance: DOCUSATE\SENNOSIDES
     Indication: CONSTIPATION
     Dates: start: 20160820
  11. THIAMINE. [Concomitant]
     Active Substance: THIAMINE
     Indication: PRODUCT USED FOR UNKNOWN INDICATION
     Dates: start: 20160718
  12. SULFAMETHOXAZOLE/TRIMETHOPRIM [Concomitant]
     Active Substance: SULFAMETHOXAZOLE\TRIMETHOPRIM
     Indication: PROPHYLAXIS
     Dates: start: 20160722
  13. GRANISETRON [Concomitant]
     Active Substance: GRANISETRON
     Dates: start: 20160831, end: 20160831
  14. HYDROCORTISONE. [Concomitant]
     Active Substance: HYDROCORTISONE
     Dates: start: 20160921, end: 20160921
  15. TAZOCIN [Concomitant]
     Active Substance: PIPERACILLIN SODIUM\TAZOBACTAM SODIUM
     Dates: start: 20160819
  16. PARACETAMOL [Concomitant]
     Active Substance: ACETAMINOPHEN
     Indication: PYREXIA
     Dates: start: 20160819, end: 20160820
  17. PARACETAMOL [Concomitant]
     Active Substance: ACETAMINOPHEN
     Dates: start: 20161001, end: 20161001
  18. AUGMENTIN DUO FORTE [Concomitant]
     Active Substance: AMOXICILLIN\CLAVULANATE POTASSIUM
     Indication: FEBRILE NEUTROPENIA
     Dates: start: 20160823, end: 20160826
  19. RITUXIMAB [Suspect]
     Active Substance: RITUXIMAB
     Indication: NON-HODGKIN^S LYMPHOMA
     Dosage: THE MOST RECENT DOSE OF RITUXIMAB, 580 MG, WAS ADMINISTERED ON 21/SEP/2016, AT 1230.
     Route: 042
     Dates: start: 20160720
  20. GRANISETRON [Concomitant]
     Active Substance: GRANISETRON
     Dates: start: 20160921, end: 20160921
  21. TAZOCIN [Concomitant]
     Active Substance: PIPERACILLIN SODIUM\TAZOBACTAM SODIUM
     Indication: FEBRILE NEUTROPENIA
     Dates: start: 20160819, end: 20160822
  22. NEULASTA [Concomitant]
     Active Substance: PEGFILGRASTIM
     Dates: start: 20160904, end: 20160904
  23. NEULASTA [Concomitant]
     Active Substance: PEGFILGRASTIM
     Dates: start: 20160814, end: 20160814
  24. CYCLOPHOSPHAMIDE. [Suspect]
     Active Substance: CYCLOPHOSPHAMIDE
     Indication: NON-HODGKIN^S LYMPHOMA
     Dosage: THE MOST RECENT DOSE OF CYCLOPHOSPHAMIDE 1155 MG WAS ADMINISTERED ON 21/SEP/2016, AT 1515.
     Route: 042
     Dates: start: 20160721
  25. DOXORUBICIN [Suspect]
     Active Substance: DOXORUBICIN
     Indication: NON-HODGKIN^S LYMPHOMA
     Dosage: THE MOST RECENT DOSE OF DOXORUBICIN, 77 MG, WAS ADMINISTERED ON 21/SEP/2016, AT 1440.
     Route: 042
     Dates: start: 20160721
  26. GRANISETRON [Concomitant]
     Active Substance: GRANISETRON
     Indication: PREMEDICATION
     Dates: start: 20160810, end: 20160810
  27. NEULASTA [Concomitant]
     Active Substance: PEGFILGRASTIM
     Indication: PRODUCT USED FOR UNKNOWN INDICATION
     Dates: start: 20160925, end: 20160925
  28. DONNATAB [Concomitant]
     Indication: PRODUCT USED FOR UNKNOWN INDICATION
     Dates: start: 20160927, end: 20160930
  29. PREDNISONE. [Suspect]
     Active Substance: PREDNISONE
     Indication: NON-HODGKIN^S LYMPHOMA
     Dosage: THE MOST RECENT DOSE OF PREDNISONE, 100 MG, WAS ADMINSTERED ON 25/SEP/2016 (DAYS 1-5)
     Route: 048
     Dates: start: 20160721
  30. PLAQUENIL [Concomitant]
     Active Substance: HYDROXYCHLOROQUINE SULFATE
     Indication: SYSTEMIC LUPUS ERYTHEMATOSUS
     Dates: start: 2006
  31. PREDNISOLONE. [Concomitant]
     Active Substance: PREDNISOLONE
     Indication: SYSTEMIC LUPUS ERYTHEMATOSUS
     Dates: start: 20160727
  32. NEXIUM [Concomitant]
     Active Substance: ESOMEPRAZOLE MAGNESIUM
     Indication: GASTROOESOPHAGEAL REFLUX DISEASE
     Dates: start: 20160727
  33. GRANISETRON [Concomitant]
     Active Substance: GRANISETRON
     Dates: start: 20161012, end: 20161012
  34. HYDROCORTISONE. [Concomitant]
     Active Substance: HYDROCORTISONE
     Indication: PYREXIA
     Dates: start: 20160831, end: 20160831
  35. VINCRISTINE [Suspect]
     Active Substance: VINCRISTINE
     Indication: NON-HODGKIN^S LYMPHOMA
     Dosage: THE MOST RECENT DOSE OF VINCRISTINE, 2 MG, WAS ADMINISTERED ON 21/SEP/2016, AT 1500.
     Route: 042
     Dates: start: 20160721
  36. LORATADINE. [Concomitant]
     Active Substance: LORATADINE
     Dates: start: 20160921, end: 20160921
  37. HYDROCORTISONE. [Concomitant]
     Active Substance: HYDROCORTISONE
     Indication: PREMEDICATION
     Dates: start: 20160810, end: 20160810
  38. METOCLOPRAMIDE. [Concomitant]
     Active Substance: METOCLOPRAMIDE
     Dates: start: 20160831, end: 20160831
  39. METOCLOPRAMIDE. [Concomitant]
     Active Substance: METOCLOPRAMIDE
     Dates: start: 20161012, end: 20161012
  40. VENETOCLAX [Suspect]
     Active Substance: VENETOCLAX
     Indication: NON-HODGKIN^S LYMPHOMA
     Dosage: THE MOST RECENT DOSE OF VENETOCLAX, 800 MG, WAS ADMINISTERED ON 29/SEP/2016.
     Route: 048
     Dates: start: 20160724
  41. LORATADINE. [Concomitant]
     Active Substance: LORATADINE
     Dates: start: 20161012, end: 20161012
  42. HYDROCORTISONE. [Concomitant]
     Active Substance: HYDROCORTISONE
     Dates: start: 20161012, end: 20161012
  43. METOCLOPRAMIDE. [Concomitant]
     Active Substance: METOCLOPRAMIDE
     Indication: PREMEDICATION
     Dates: start: 20160810, end: 20160810
  44. METOCLOPRAMIDE. [Concomitant]
     Active Substance: METOCLOPRAMIDE
     Dates: start: 20160921, end: 20160921
  45. PARACETAMOL [Concomitant]
     Active Substance: ACETAMINOPHEN
     Indication: PREMEDICATION
     Dates: start: 20160831, end: 20160831
  46. PARACETAMOL [Concomitant]
     Active Substance: ACETAMINOPHEN
     Dates: start: 20161012, end: 20161012

REACTIONS (1)
  - Stomatitis [Recovered/Resolved]

NARRATIVE: CASE EVENT DATE: 20160909
